FAERS Safety Report 18195929 (Version 2)
Quarter: 2020Q4

REPORT INFORMATION
  Report Type: Report from Study
  Country: US (occurrence: US)
  Receive Date: 20200826
  Receipt Date: 20201118
  Transmission Date: 20210113
  Serious: No
  Sender: FDA-Public Use
  Company Number: NVSC2019US094148

PATIENT
  Sex: Female

DRUGS (2)
  1. FML [Suspect]
     Active Substance: FLUOROMETHOLONE
     Indication: PRODUCT USED FOR UNKNOWN INDICATION
     Route: 065
  2. PREDNISOLONE ACETATE. [Suspect]
     Active Substance: PREDNISOLONE ACETATE
     Indication: PRODUCT USED FOR UNKNOWN INDICATION
     Dosage: UNK
     Route: 065

REACTIONS (1)
  - Treatment failure [Unknown]
